FAERS Safety Report 22639824 (Version 1)
Quarter: 2023Q2

REPORT INFORMATION
  Report Type: Spontaneous
  Country: ES (occurrence: ES)
  Receive Date: 20230626
  Receipt Date: 20230626
  Transmission Date: 20230722
  Serious: Yes (Other)
  Sender: FDA-Public Use
  Company Number: ES-SAMSUNG BIOEPIS-SB-2023-16801

PATIENT
  Age: 58 Year
  Sex: Female

DRUGS (1)
  1. IMRALDI [Suspect]
     Active Substance: ADALIMUMAB
     Indication: Uveitis
     Dosage: UNKNOWN
     Route: 065

REACTIONS (3)
  - Blindness [Not Recovered/Not Resolved]
  - Bronchitis [Not Recovered/Not Resolved]
  - Tension [Not Recovered/Not Resolved]
